FAERS Safety Report 26093470 (Version 2)
Quarter: 2025Q4

REPORT INFORMATION
  Report Type: Report from Study
  Country: US (occurrence: US)
  Receive Date: 20251126
  Receipt Date: 20251224
  Transmission Date: 20260117
  Serious: Yes (Other)
  Sender: MALLINCKRODT
  Company Number: US-MALLINCKRODT-MNK202507415

PATIENT
  Sex: Male

DRUGS (4)
  1. CORTICOTROPIN [Suspect]
     Active Substance: CORTICOTROPIN
     Indication: Sarcoidosis
     Dosage: UNK
     Dates: start: 2022
  2. SUBOXONE [Concomitant]
     Active Substance: BUPRENORPHINE HYDROCHLORIDE\NALOXONE HYDROCHLORIDE
     Dosage: UNK
     Dates: start: 2011
  3. RESTASIS [Concomitant]
     Active Substance: CYCLOSPORINE
     Dosage: UNKNOWN
  4. TRIAMCINOLONE [Concomitant]
     Active Substance: TRIAMCINOLONE
     Dosage: UNKNOWN

REACTIONS (13)
  - Upper limb fracture [Recovering/Resolving]
  - Illness [Unknown]
  - Animal bite [Unknown]
  - Fall [Unknown]
  - Limb injury [Unknown]
  - Thermal burn [Unknown]
  - Skin papilloma [Not Recovered/Not Resolved]
  - Disease recurrence [Not Recovered/Not Resolved]
  - Wound infection [Unknown]
  - Infection [Unknown]
  - Insomnia [Unknown]
  - Tooth abscess [Unknown]
  - Expired product administered [Unknown]
